FAERS Safety Report 10543562 (Version 2)
Quarter: 2014Q4

REPORT INFORMATION
  Report Type: Spontaneous
  Country: US (occurrence: None)
  Receive Date: 20141010
  Receipt Date: 20141205
  Transmission Date: 20150529
  Serious: Yes (Other)
  Sender: FDA-Public Use
  Company Number: 163-POMAL-14081199

PATIENT
  Age: 63 Year
  Sex: Female
  Weight: 70.8 kg

DRUGS (14)
  1. CALCIUM CARBONATE. [Concomitant]
     Active Substance: CALCIUM CARBONATE
  2. WARFARIN SODIUM. [Concomitant]
     Active Substance: WARFARIN SODIUM
  3. NUCYNTA (TAPENTADOL HYDROCHLORIDE) [Concomitant]
  4. LIDOCAINE. [Concomitant]
     Active Substance: LIDOCAINE
  5. METOCLOPRAMIDE HCL [Concomitant]
     Active Substance: METOCLOPRAMIDE HYDROCHLORIDE
  6. COUMADIN [Concomitant]
     Active Substance: WARFARIN SODIUM
  7. METHADONE HCL (METHADONE HYDROCHLORIDE) [Concomitant]
  8. DEXAMETHASONE. [Suspect]
     Active Substance: DEXAMETHASONE
     Indication: PRODUCT USED FOR UNKNOWN INDICATION
  9. POMALYST [Suspect]
     Active Substance: POMALIDOMIDE
     Indication: PLASMA CELL MYELOMA
     Dosage: 4MG, 21 IN 28D, PO
     Route: 048
     Dates: start: 20140603
  10. LEVOFLOXACIN. [Concomitant]
     Active Substance: LEVOFLOXACIN
  11. POTASSIUM CHLORIDE. [Concomitant]
     Active Substance: POTASSIUM CHLORIDE
  12. FENTANYL. [Concomitant]
     Active Substance: FENTANYL
  13. OXYCODONE-ACETAMINOPHEN (PARACETAMOL, OXYCODONE HYDROCHLORIDE) [Concomitant]
  14. MEGESTROL ACETATE. [Concomitant]
     Active Substance: MEGESTROL ACETATE

REACTIONS (3)
  - Full blood count decreased [None]
  - Diarrhoea [None]
  - Back pain [None]

NARRATIVE: CASE EVENT DATE: 2014
